FAERS Safety Report 9984833 (Version 1)
Quarter: 2014Q1

REPORT INFORMATION
  Report Type: Report from Study
  Country: US (occurrence: US)
  Receive Date: 20140307
  Receipt Date: 20140307
  Transmission Date: 20141002
  Serious: Yes (Hospitalization)
  Sender: FDA-Public Use
  Company Number: PHHY2014US025747

PATIENT
  Age: 71 Year
  Sex: Male

DRUGS (5)
  1. 5-FLUOROURACIL [Suspect]
     Indication: COLORECTAL CANCER METASTATIC
     Dosage: 700 MG
     Route: 040
     Dates: start: 20130626
  2. 5-FLUOROURACIL [Suspect]
     Dosage: 4220 MG
     Route: 042
     Dates: start: 20130626
  3. CALCIUM FOLINATE [Suspect]
     Indication: COLORECTAL CANCER METASTATIC
     Dosage: 703 MG, EVERY 2 WEEKS
     Route: 042
     Dates: start: 20130626
  4. IRINOTECAN [Suspect]
     Indication: COLORECTAL CANCER METASTATIC
     Dosage: 320 MG, EVERY 2 WEEKS
     Route: 042
     Dates: start: 20130626
  5. BEVACIZUMAB [Suspect]
     Indication: COLORECTAL CANCER METASTATIC
     Dosage: 330 MG, EVERY 2 WEEKS
     Route: 042
     Dates: start: 20130626

REACTIONS (1)
  - Mental status changes [Unknown]
